FAERS Safety Report 5843074-3 (Version None)
Quarter: 2008Q3

REPORT INFORMATION
  Report Type: 
  Country: None (occurrence: None)
  Receive Date: 20080813
  Receipt Date: 20080805
  Transmission Date: 20090109
  Serious: Yes (Hospitalization)
  Sender: FDA-Public Use
  Company Number: US-ROCHE-579434

PATIENT
  Age: 57 Year
  Sex: Female

DRUGS (4)
  1. XELODA [Suspect]
     Dosage: 14 DAYS ON AND 7 DAYS OFF
     Route: 065
     Dates: end: 20080725
  2. PRILOSEC [Concomitant]
  3. VITAMINE D [Concomitant]
  4. HYDROCHLOROTHIAZIDE [Concomitant]

REACTIONS (2)
  - CARDIAC TAMPONADE [None]
  - PERICARDIAL EFFUSION [None]
